FAERS Safety Report 4480372-2 (Version None)
Quarter: 2004Q4

REPORT INFORMATION
  Report Type: 
  Country: None (occurrence: None)
  Receive Date: 20041018
  Receipt Date: 20041005
  Transmission Date: 20050328
  Serious: Yes (Death)
  Sender: FDA-Public Use
  Company Number: 8962

PATIENT
  Age: 76 Year
  Sex: Female

DRUGS (11)
  1. METHOTREXATE [Suspect]
     Indication: RHEUMATOID ARTHRITIS
     Dosage: 5 MG WEEKLY
  2. SULFAMETHOXAZOLE + TRIMETHOPRIM [Suspect]
     Indication: RESPIRATORY TRACT INFECTION
     Dosage: 80 MG BID/400 MG BID
  3. CAPTOPRIL [Concomitant]
  4. FUROSEMIDE [Concomitant]
  5. CHLORTHALIDONE [Concomitant]
  6. ALENDRONATE SODIUM [Concomitant]
  7. OXAZEPAM [Concomitant]
  8. PREDNISOLONE [Concomitant]
  9. OMEPRAZOLE [Concomitant]
  10. VITAMIN E [Concomitant]
  11. VITAMIN D3 [Concomitant]

REACTIONS (8)
  - BACTERIAL SEPSIS [None]
  - BLOOD ALKALINE PHOSPHATASE INCREASED [None]
  - CANDIDA SEPSIS [None]
  - DRUG INTERACTION [None]
  - HAEMATOMA [None]
  - MULTI-ORGAN FAILURE [None]
  - PANCYTOPENIA [None]
  - RESPIRATORY TRACT INFECTION [None]
